FAERS Safety Report 24905622 (Version 1)
Quarter: 2025Q1

REPORT INFORMATION
  Report Type: Report from Study
  Country: US (occurrence: US)
  Receive Date: 20250130
  Receipt Date: 20250130
  Transmission Date: 20250408
  Serious: No
  Sender: HRA PHARMA
  Company Number: US-ORG100014127-2024000145

PATIENT
  Age: 68 Year
  Sex: Female

DRUGS (14)
  1. METOPIRONE [Suspect]
     Active Substance: METYRAPONE
     Indication: Adrenal gland cancer
     Dosage: TAKE 1 TABLET BY MOUTH THREE TIMES DAILY
     Dates: start: 20240427, end: 2024
  2. Aspirin CHW 81mg [Concomitant]
     Indication: Product used for unknown indication
  3. Aspirin low tablet 81mg [Concomitant]
     Indication: Product used for unknown indication
  4. Carvedilol tablet 6.25mg [Concomitant]
     Indication: Product used for unknown indication
  5. Dulcolax 5mg EC [Concomitant]
     Indication: Product used for unknown indication
  6. HYDROCHLOROTHIAZIDE [Concomitant]
     Active Substance: HYDROCHLOROTHIAZIDE
     Indication: Product used for unknown indication
  7. LISINOPRIL [Concomitant]
     Active Substance: LISINOPRIL
     Indication: Product used for unknown indication
  8. LISINOPRIL [Concomitant]
     Active Substance: LISINOPRIL
     Indication: Product used for unknown indication
  9. LISINOPRIL [Concomitant]
     Active Substance: LISINOPRIL
     Indication: Product used for unknown indication
  10. losartan/hydrochlorothiazide 100 mg/25 mg [Concomitant]
     Indication: Product used for unknown indication
  11. Metoprolol  50 mg [Concomitant]
     Indication: Product used for unknown indication
  12. oxycodone tablet 5mg [Concomitant]
     Indication: Product used for unknown indication
  13. pylera capsules [Concomitant]
     Indication: Product used for unknown indication
  14. spironolactone tablet 25 mg [Concomitant]
     Indication: Product used for unknown indication

REACTIONS (1)
  - Off label use [Recovered/Resolved]

NARRATIVE: CASE EVENT DATE: 20240503
